FAERS Safety Report 6425757-X (Version None)
Quarter: 2009Q4

REPORT INFORMATION
  Report Type: 
  Country: None (occurrence: None)
  Receive Date: 20091029
  Receipt Date: 20091016
  Transmission Date: 20100525
  Serious: Yes (Death, Hospitalization)
  Sender: FDA-Public Use
  Company Number: 2009AC000093

PATIENT
  Age: 64 Year
  Sex: Female

DRUGS (40)
  1. DIGOXIN [Suspect]
     Dosage: 0.25 MG;QD;PO
     Route: 048
     Dates: start: 19980401
  2. MONOPRIL [Concomitant]
  3. HYDROXYUREA [Concomitant]
  4. COUMADIN [Concomitant]
  5. FOSINOPRIL SODIUM [Concomitant]
  6. SPORANOX [Concomitant]
  7. FUROSEMIDE [Concomitant]
  8. GLYBURIDE [Concomitant]
  9. ASCENSIA [Concomitant]
  10. ISOSORBIDE [Concomitant]
  11. TYLENOL (CAPLET) [Concomitant]
  12. SPIRONOLACTONE [Concomitant]
  13. COREG [Concomitant]
  14. FOSAMAX [Concomitant]
  15. NITROGLYCERIN [Concomitant]
  16. PRINIVIL [Concomitant]
  17. SIMAVASTATIN [Concomitant]
  18. CARVEDILOL [Concomitant]
  19. NEXIUM [Concomitant]
  20. FLONASE [Concomitant]
  21. CALCIUM [Concomitant]
  22. NITROGLYCERIN [Concomitant]
  23. XANAX [Concomitant]
  24. SIMETHICONE [Concomitant]
  25. TYLENOL [Concomitant]
  26. PHENERGAN HCL [Concomitant]
  27. IBUPROFEN [Concomitant]
  28. CHLORPHENIRAMINE MALEATE [Concomitant]
  29. ALPRAZOLAM [Concomitant]
  30. LOPERAMIDE [Concomitant]
  31. FLUTICASONE PROPIONATE [Concomitant]
  32. NOVOLIN [Concomitant]
  33. PREMARIN [Concomitant]
  34. ITRACONAZOLE [Concomitant]
  35. HYDOX-UREA [Concomitant]
  36. CALCIUM [Concomitant]
  37. ZITHROMAX [Concomitant]
  38. COUMADIN [Concomitant]
  39. LOTENSIN [Concomitant]
  40. CEPHALEXIN [Concomitant]

REACTIONS (15)
  - ASTHENIA [None]
  - ATAXIA [None]
  - ATRIAL FIBRILLATION [None]
  - BRADYCARDIA [None]
  - CORONARY ARTERY DISEASE [None]
  - DISORIENTATION [None]
  - ECONOMIC PROBLEM [None]
  - GASTROENTERITIS [None]
  - HIATUS HERNIA [None]
  - HYPERTENSION [None]
  - HYPOTENSION [None]
  - INJURY [None]
  - MITRAL VALVE STENOSIS [None]
  - ROAD TRAFFIC ACCIDENT [None]
  - THERAPEUTIC AGENT TOXICITY [None]
